FAERS Safety Report 4959300-9 (Version None)
Quarter: 2006Q1

REPORT INFORMATION
  Report Type: 
  Country: None (occurrence: None)
  Receive Date: 20060331
  Receipt Date: 20060328
  Transmission Date: 20060701
  Serious: Yes (Death, Other)
  Sender: FDA-Public Use
  Company Number: US-JNJFOC-20060303347

PATIENT
  Age: 34 Year
  Sex: Male

DRUGS (3)
  1. DURAGESIC-100 [Suspect]
     Route: 062
  2. BIAXIN [Interacting]
  3. MULTIPLE UNSPECIFIED MEDICATIONS [Concomitant]

REACTIONS (5)
  - DRUG INTERACTION [None]
  - DRUG TOXICITY [None]
  - HYPERTENSION [None]
  - OFF LABEL USE [None]
  - RESPIRATORY ARREST [None]
